FAERS Safety Report 19077339 (Version 1)
Quarter: 2021Q1

REPORT INFORMATION
  Report Type: Spontaneous
  Country: US (occurrence: US)
  Receive Date: 20210331
  Receipt Date: 20210331
  Transmission Date: 20210420
  Serious: Yes (Hospitalization)
  Sender: FDA-Public Use
  Company Number: US-SA-2021SA099236

PATIENT
  Age: 74 Year

DRUGS (1)
  1. DOCETAXEL WINTHROP [Suspect]
     Active Substance: DOCETAXEL
     Route: 065

REACTIONS (1)
  - Anaemia [Recovered/Resolved]
